FAERS Safety Report 23461551 (Version 3)
Quarter: 2024Q1

REPORT INFORMATION
  Report Type: Spontaneous
  Country: US (occurrence: US)
  Receive Date: 20240131
  Receipt Date: 20240313
  Transmission Date: 20240410
  Serious: Yes (Other)
  Sender: FDA-Public Use
  Company Number: US-PFIZER INC-PV202400014009

PATIENT
  Age: 72 Year
  Sex: Female

DRUGS (2)
  1. XELJANZ [Suspect]
     Active Substance: TOFACITINIB CITRATE
     Indication: Colitis microscopic
     Dosage: 10 MG
  2. XELJANZ [Suspect]
     Active Substance: TOFACITINIB CITRATE
     Indication: Colitis ulcerative
     Dosage: 2-5MG DAILY

REACTIONS (6)
  - Atrial fibrillation [Unknown]
  - Cardiac disorder [Unknown]
  - Stress [Unknown]
  - Fall [Unknown]
  - Anxiety disorder [Unknown]
  - Blood pressure abnormal [Unknown]
